FAERS Safety Report 12949094 (Version 2)
Quarter: 2016Q4

REPORT INFORMATION
  Report Type: Spontaneous
  Country: US (occurrence: US)
  Receive Date: 20161117
  Receipt Date: 20161206
  Transmission Date: 20170207
  Serious: No
  Sender: FDA-Public Use
  Company Number: US-PFIZER INC-2016526393

PATIENT
  Age: 59 Year
  Sex: Male
  Weight: 98.43 kg

DRUGS (4)
  1. GABAPENTIN. [Suspect]
     Active Substance: GABAPENTIN
     Indication: DIABETIC NEUROPATHY
     Dosage: 300 MG, 1X/DAY (AT BEDTIME)
     Dates: start: 20161003, end: 20161109
  2. GABAPENTIN. [Suspect]
     Active Substance: GABAPENTIN
     Dosage: 300 MG, UNK [ONE CAPSULE MORNING AND EVENING, TWO CAPSULE AT BEDTIME]
  3. JANUMET [Concomitant]
     Active Substance: METFORMIN HYDROCHLORIDE\SITAGLIPTIN PHOSPHATE
     Indication: DIABETES MELLITUS
     Dosage: UNK UNK, 2X/DAY, [1000 MG METFORMIN HYDROCHLORIDE, 50 MG SITAGLIPTIN PHOSPHATE MONOHYDRATE)]
     Dates: start: 20160930
  4. LISINOPRIL. [Concomitant]
     Active Substance: LISINOPRIL
     Indication: HYPERTENSION
     Dosage: UNK UNK, 1X/DAY (12.5/20 MG )

REACTIONS (1)
  - Drug ineffective for unapproved indication [Not Recovered/Not Resolved]

NARRATIVE: CASE EVENT DATE: 20161003
